FAERS Safety Report 9476482 (Version 2)
Quarter: 2013Q4

REPORT INFORMATION
  Report Type: Spontaneous
  Country: US (occurrence: US)
  Receive Date: 20130826
  Receipt Date: 20131028
  Transmission Date: 20140711
  Serious: No
  Sender: FDA-Public Use
  Company Number: US-ROXANE LABORATORIES, INC.-2013-RO-01399RO

PATIENT
  Age: 59 Year
  Sex: Male

DRUGS (3)
  1. FLUTICASONE [Suspect]
     Indication: SINUSITIS
     Route: 045
     Dates: start: 20130813
  2. ANTIBIOTIC [Concomitant]
     Indication: SINUSITIS
  3. EXCEDRIN [Concomitant]

REACTIONS (2)
  - Sneezing [Not Recovered/Not Resolved]
  - Product quality issue [Unknown]
